FAERS Safety Report 5019333-3 (Version None)
Quarter: 2006Q2

REPORT INFORMATION
  Report Type: 
  Country: None (occurrence: None)
  Receive Date: 20060531
  Receipt Date: 20060515
  Transmission Date: 20061013
  Serious: Yes (Death, Other)
  Sender: FDA-Public Use
  Company Number: MAG-2006-0000440

PATIENT
  Age: 76 Year
  Sex: Female

DRUGS (17)
  1. OXYCODONE HCL [Suspect]
     Indication: CANCER PAIN
     Dosage: SEE IMAGE
     Route: 048
     Dates: start: 20050704, end: 20050706
  2. OXYCODONE HCL [Suspect]
     Indication: CANCER PAIN
     Dosage: SEE IMAGE
     Route: 048
     Dates: start: 20050706, end: 20050707
  3. OXYCODONE HCL [Suspect]
     Indication: CANCER PAIN
     Dosage: SEE IMAGE
     Route: 048
     Dates: start: 20050711, end: 20050714
  4. OXYCODONE HCL [Suspect]
     Indication: CANCER PAIN
     Dosage: SEE IMAGE
     Route: 048
     Dates: start: 20050719, end: 20050727
  5. OXYCODONE HCL [Suspect]
     Indication: CANCER PAIN
     Dosage: SEE IMAGE
     Route: 048
     Dates: start: 20050727, end: 20050801
  6. NOVAMIN (PROCHLORPERAZINE) [Concomitant]
  7. ANAFRANIL [Concomitant]
  8. DROPERIDOL [Concomitant]
  9. ABILIT (SULPIRIDE) [Concomitant]
  10. LENDORM [Concomitant]
  11. PURSENNID (SENNA LEAF) [Concomitant]
  12. HUMULIN R [Concomitant]
  13. TRAZODONE HCL [Concomitant]
  14. EVAMYL (LORMETAZEPAM) [Concomitant]
  15. DEPAS (ETIZOLAM) [Concomitant]
  16. LECICARBON (SODIUM BICARBONATE, SODIUM PHOSPHATE) [Concomitant]
  17. FENTANYL CITRATE [Concomitant]

REACTIONS (4)
  - CONSTIPATION [None]
  - DELIRIUM [None]
  - MALIGNANT NEOPLASM PROGRESSION [None]
  - VOMITING [None]
